FAERS Safety Report 19662056 (Version 2)
Quarter: 2021Q3

REPORT INFORMATION
  Report Type: Spontaneous
  Country: US (occurrence: US)
  Receive Date: 20210805
  Receipt Date: 20210930
  Transmission Date: 20211014
  Serious: No
  Sender: FDA-Public Use
  Company Number: US-PFIZER INC-202100935351

PATIENT
  Age: 71 Year
  Sex: Female

DRUGS (1)
  1. IBRANCE [Suspect]
     Active Substance: PALBOCICLIB
     Dosage: 125 MG
     Dates: start: 20210715

REACTIONS (12)
  - Arthralgia [Unknown]
  - Constipation [Unknown]
  - Myalgia [Not Recovered/Not Resolved]
  - Eructation [Unknown]
  - Vomiting [Recovered/Resolved]
  - Hypotension [Not Recovered/Not Resolved]
  - Pain in extremity [Unknown]
  - Feeling abnormal [Unknown]
  - Headache [Recovering/Resolving]
  - Decreased appetite [Recovered/Resolved]
  - Nausea [Recovered/Resolved]
  - Back pain [Unknown]
